FAERS Safety Report 5017394-9 (Version None)
Quarter: 2006Q2

REPORT INFORMATION
  Report Type: 
  Country: None (occurrence: None)
  Receive Date: 20060414
  Receipt Date: 20060225
  Transmission Date: 20061013
  Serious: No
  Sender: FDA-Public Use
  Company Number: 2006SP000969

PATIENT
  Age: 44 Year
  Sex: Female
  Weight: 65.7716 kg

DRUGS (4)
  1. LUNESTA [Suspect]
     Indication: INSOMNIA
     Dosage: 2 MG;ORAL
     Route: 048
     Dates: start: 20060224, end: 20060225
  2. ESTROGENS CONJUGATED [Concomitant]
  3. NEURONTIN [Concomitant]
  4. VITAMINS [Concomitant]

REACTIONS (4)
  - DYSGEUSIA [None]
  - DYSPEPSIA [None]
  - INSOMNIA [None]
  - NAUSEA [None]
